FAERS Safety Report 5008120-8 (Version None)
Quarter: 2006Q2

REPORT INFORMATION
  Report Type: 
  Country: None (occurrence: None)
  Receive Date: 20060404
  Receipt Date: 20060120
  Transmission Date: 20061013
  Serious: Yes (Other)
  Sender: FDA-Public Use
  Company Number: 2005-0009009

PATIENT
  Sex: Male

DRUGS (3)
  1. TRUVADA [Suspect]
     Indication: HIV INFECTION
  2. LEXIVA [Suspect]
     Indication: HIV INFECTION
  3. METFORMIN [Suspect]

REACTIONS (1)
  - HYPERLACTACIDAEMIA [None]
